FAERS Safety Report 9120720 (Version 3)
Quarter: 2014Q1

REPORT INFORMATION
  Report Type: Report from Study
  Country: TR (occurrence: TR)
  Receive Date: 20130226
  Receipt Date: 20140310
  Transmission Date: 20141002
  Serious: Yes (Life-Threatening, Hospitalization, Other)
  Sender: FDA-Public Use
  Company Number: TR-ROCHE-1193032

PATIENT
  Age: 39 Year
  Sex: Female
  Weight: 62 kg

DRUGS (2)
  1. PEG-INTERFERON ALFA 2A [Suspect]
     Indication: HEPATITIS D
     Dosage: DATE OF LAST DOSE PRIOR TO SAE: 22/AUG/2012
     Route: 058
     Dates: start: 20101027
  2. BLINDED TENOFOVIR [Suspect]
     Indication: HEPATITIS D
     Dosage: DATE OF LAST DOSE PRIOR TO SAE: 26/AUG/2012
     Route: 048
     Dates: start: 20121027

REACTIONS (2)
  - Acute hepatic failure [Recovered/Resolved]
  - Hepatic failure [Recovered/Resolved]
